FAERS Safety Report 17584052 (Version 1)
Quarter: 2020Q1

REPORT INFORMATION
  Report Type: Other
  Country: DE (occurrence: DE)
  Receive Date: 20200326
  Receipt Date: 20200326
  Transmission Date: 20200409
  Serious: Yes (Hospitalization, Disabling, Other)
  Sender: FDA-Public Use
  Company Number: DE-DEXPHARM-20200249

PATIENT
  Age: 25 Year
  Sex: Male

DRUGS (2)
  1. VENLAFAXINE [Suspect]
     Active Substance: VENLAFAXINE HYDROCHLORIDE
     Indication: MAJOR DEPRESSION
     Dosage: VENLAFAXINE (EXTENDED RELEASE) WAS ADMINISTERED SIMULTANEOUSLY STARTING WITH 37.5 MG PER DAY
  2. VENLAFAXINE [Suspect]
     Active Substance: VENLAFAXINE HYDROCHLORIDE
     Indication: MAJOR DEPRESSION
     Dosage: VENLAFAXINE WAS GRADUALLY INCREASED UP TO A DAILY DOSE OF 150 MG

REACTIONS (4)
  - Hyperhidrosis [Recovered/Resolved]
  - Obsessive-compulsive symptom [Recovered/Resolved]
  - Restlessness [Recovered/Resolved]
  - Withdrawal syndrome [Recovered/Resolved]
